FAERS Safety Report 6369578-5 (Version None)
Quarter: 2009Q3

REPORT INFORMATION
  Report Type: 
  Country: None (occurrence: None)
  Receive Date: 20090923
  Receipt Date: 20090911
  Transmission Date: 20100115
  Serious: Yes (Other)
  Sender: FDA-Public Use
  Company Number: PHHY2009FR38923

PATIENT
  Age: 86 Year
  Sex: Male

DRUGS (8)
  1. EXELON [Suspect]
     Dosage: 4.5 MG, BID
     Route: 048
     Dates: start: 20090419, end: 20090601
  2. EXELON [Suspect]
     Dosage: 4.5 MG, BID
     Route: 048
     Dates: start: 20090821
  3. EXELON [Suspect]
     Dosage: 4.6 MG, UNK
     Dates: start: 20090601, end: 20090710
  4. EXELON [Suspect]
     Dosage: 9.5 MG
     Dates: start: 20090711, end: 20090821
  5. TAHOR [Concomitant]
  6. TRANXENE [Concomitant]
     Dosage: UNK
  7. DIAMICRON [Concomitant]
  8. BETASERC [Concomitant]
     Dosage: UNK

REACTIONS (5)
  - AGGRESSION [None]
  - AGITATION [None]
  - ERYTHEMA [None]
  - PRURITUS [None]
  - RASH [None]
